FAERS Safety Report 17333376 (Version 2)
Quarter: 2020Q1

REPORT INFORMATION
  Report Type: Report from Study
  Country: CA (occurrence: CA)
  Receive Date: 20200128
  Receipt Date: 20200316
  Transmission Date: 20200409
  Serious: Yes (Other)
  Sender: FDA-Public Use
  Company Number: CA-ROCHE-2401362

PATIENT
  Age: 56 Year
  Sex: Female

DRUGS (7)
  1. OXYBUTYNIN. [Concomitant]
     Active Substance: OXYBUTYNIN CHLORIDE
  2. IBUPROFEN. [Concomitant]
     Active Substance: IBUPROFEN
  3. OCREVUS [Suspect]
     Active Substance: OCRELIZUMAB
     Indication: PRIMARY PROGRESSIVE MULTIPLE SCLEROSIS
     Dosage: 300 MG AT DAY 0 AND 14, THEN 600 MG EVERY 6 MONTH ;ONGOING: YES
     Route: 042
     Dates: start: 20190831
  4. GABAPENTIN. [Concomitant]
     Active Substance: GABAPENTIN
  5. ZOPICLONE [Concomitant]
     Active Substance: ZOPICLONE
  6. BUPROPION. [Concomitant]
     Active Substance: BUPROPION
  7. RANITIDINE. [Concomitant]
     Active Substance: RANITIDINE

REACTIONS (5)
  - Cough [Not Recovered/Not Resolved]
  - Cellulitis [Recovering/Resolving]
  - Contusion [Not Recovered/Not Resolved]
  - Peripheral swelling [Not Recovered/Not Resolved]
  - Nasal disorder [Not Recovered/Not Resolved]

NARRATIVE: CASE EVENT DATE: 201910
